FAERS Safety Report 4850169-X (Version None)
Quarter: 2005Q4

REPORT INFORMATION
  Report Type: 
  Country: None (occurrence: None)
  Receive Date: 20051207
  Receipt Date: 20051207
  Transmission Date: 20060501
  Serious: No
  Sender: FDA-Public Use
  Company Number: None

PATIENT
  Age: 4 Year
  Sex: Female

DRUGS (2)
  1. PREVACID [Suspect]
     Dosage: TABLET, ORALLY DISINTGRATING
     Route: 048
  2. PREVACID [Suspect]
     Dosage: GRANULE, FOR RESCONSTITUTION ER

REACTIONS (2)
  - DRUG DISPENSING ERROR [None]
  - MEDICATION ERROR [None]
